FAERS Safety Report 9907156 (Version 2)
Quarter: 2014Q1

REPORT INFORMATION
  Report Type: Spontaneous
  Country: PL (occurrence: PL)
  Receive Date: 20140218
  Receipt Date: 20140218
  Transmission Date: 20141002
  Serious: Yes (Death, Life-Threatening, Hospitalization, Other)
  Sender: FDA-Public Use
  Company Number: PL-ELI_LILLY_AND_COMPANY-PL201311008321

PATIENT
  Age: 64 Year
  Sex: Male
  Weight: 65 kg

DRUGS (12)
  1. ALIMTA [Suspect]
     Indication: PLEURAL MESOTHELIOMA
     Dosage: 430 MG, UNKNOWN
     Route: 042
     Dates: end: 20131115
  2. CISPLATIN [Suspect]
     Indication: LUNG NEOPLASM MALIGNANT
     Dosage: 129.25 MG, UNK
     Route: 042
     Dates: start: 20131115, end: 20131115
  3. FOLIK [Concomitant]
  4. VIVACOR [Concomitant]
  5. FRAXIPARINE [Concomitant]
  6. PANTOPRAZOL [Concomitant]
  7. GABAPENTIN [Concomitant]
  8. OXYCONTIN [Concomitant]
  9. SEVREDOL [Concomitant]
  10. APO-DOXAN [Concomitant]
  11. DIGOXIN [Concomitant]
  12. CYCLONAMINE [Concomitant]

REACTIONS (5)
  - Respiratory failure [Fatal]
  - Neutropenia [Recovered/Resolved]
  - Anaemia [Unknown]
  - Thrombocytopenia [Unknown]
  - Bone marrow failure [Unknown]
